FAERS Safety Report 20726942 (Version 2)
Quarter: 2022Q2

REPORT INFORMATION
  Report Type: Spontaneous
  Country: CO (occurrence: CO)
  Receive Date: 20220419
  Receipt Date: 20220429
  Transmission Date: 20220721
  Serious: Yes (Hospitalization)
  Sender: FDA-Public Use
  Company Number: CO-ARBOR PHARMACEUTICALS, LLC-CO-2022ARB001051

PATIENT

DRUGS (3)
  1. TRIPTODUR [Suspect]
     Active Substance: TRIPTORELIN
     Indication: Precocious puberty
     Dosage: STRENGTH:3.75 MG 1 LIO ? 1 FCO LIOFILIZADO PARA SOLUCION (3.75 MG,1 M)
     Route: 030
     Dates: start: 202109
  2. TRIPTODUR [Suspect]
     Active Substance: TRIPTORELIN
  3. TRIPTODUR [Suspect]
     Active Substance: TRIPTORELIN

REACTIONS (3)
  - Injection site inflammation [Unknown]
  - Application site erythema [Unknown]
  - Off label use [Unknown]

NARRATIVE: CASE EVENT DATE: 20210901
